FAERS Safety Report 4910854-8 (Version None)
Quarter: 2006Q1

REPORT INFORMATION
  Report Type: 
  Country: None (occurrence: None)
  Receive Date: 20060214
  Receipt Date: 20060209
  Transmission Date: 20060701
  Serious: Yes (Hospitalization)
  Sender: FDA-Public Use
  Company Number: FR-GLAXOSMITHKLINE-B0409789A

PATIENT
  Age: 93 Year
  Sex: Female
  Weight: 40 kg

DRUGS (15)
  1. AMOXICILLIN TRIHYDRATE [Suspect]
     Indication: HELICOBACTER INFECTION
     Dosage: 1G TWICE PER DAY
     Route: 048
     Dates: start: 20060114, end: 20060119
  2. NOROXIN [Suspect]
     Indication: URINARY TRACT INFECTION
     Dosage: 400MG TWICE PER DAY
     Route: 048
     Dates: start: 20060103, end: 20060112
  3. CLARITHROMYCIN [Suspect]
     Indication: HELICOBACTER INFECTION
     Dosage: 500MG TWICE PER DAY
     Route: 048
     Dates: start: 20060114, end: 20060119
  4. LASILIX [Concomitant]
     Indication: ESSENTIAL HYPERTENSION
     Dosage: 20MG PER DAY
     Route: 048
     Dates: end: 20060102
  5. COZAAR [Concomitant]
     Indication: ESSENTIAL HYPERTENSION
     Dosage: 50MG PER DAY
     Route: 048
     Dates: end: 20060102
  6. MOPRAL [Concomitant]
     Indication: GASTRIC ULCER HAEMORRHAGE
     Route: 048
     Dates: start: 20060104
  7. DOLIPRANE [Concomitant]
     Dosage: 1G THREE TIMES PER DAY
     Dates: end: 20060117
  8. DIGOXIN [Concomitant]
     Dosage: .125MG PER DAY
  9. CONTRAMAL [Concomitant]
     Dosage: 50MG THREE TIMES PER DAY
  10. MONOTILDIEM [Concomitant]
     Dosage: 200MG PER DAY
     Route: 048
     Dates: end: 20060102
  11. EUPRESSYL [Concomitant]
     Dosage: 60MG PER DAY
     Route: 048
     Dates: start: 20060105, end: 20060119
  12. LACTULOSE [Concomitant]
     Dates: start: 20060104, end: 20060108
  13. TARDYFERON [Concomitant]
     Dates: start: 20060105
  14. PREVISCAN [Concomitant]
     Dates: start: 20060110, end: 20060111
  15. CALCIPARINE [Concomitant]
     Dates: start: 20051201, end: 20060123

REACTIONS (3)
  - EOSINOPHILIA [None]
  - LEUKOCYTOCLASTIC VASCULITIS [None]
  - PETECHIAE [None]
